FAERS Safety Report 24567227 (Version 1)
Quarter: 2024Q4

REPORT INFORMATION
  Report Type: Spontaneous
  Country: JP (occurrence: JP)
  Receive Date: 20241030
  Receipt Date: 20241030
  Transmission Date: 20250115
  Serious: Yes (Death, Other)
  Sender: MALLINCKRODT
  Company Number: JP-MALLINCKRODT-MNK202406566

PATIENT
  Sex: Female
  Weight: 2 kg

DRUGS (1)
  1. NITRIC OXIDE [Suspect]
     Active Substance: NITRIC OXIDE
     Indication: Newborn persistent pulmonary hypertension
     Dosage: UNKNOWN

REACTIONS (11)
  - Newborn persistent pulmonary hypertension [Fatal]
  - Condition aggravated [Fatal]
  - Pulmonary infarction [Unknown]
  - Cardiac failure [Unknown]
  - Pneumothorax [Unknown]
  - Opitz-G/BBB syndrome [Unknown]
  - Thalamus haemorrhage [Unknown]
  - Pulmonary haemorrhage [Unknown]
  - Intraventricular haemorrhage [Unknown]
  - Blood pressure increased [Unknown]
  - Skin oedema [Unknown]
